FAERS Safety Report 9881600 (Version 1)
Quarter: 2014Q1

REPORT INFORMATION
  Report Type: Spontaneous
  Country: FR (occurrence: FR)
  Receive Date: 20140207
  Receipt Date: 20140207
  Transmission Date: 20141002
  Serious: Yes (Hospitalization)
  Sender: FDA-Public Use
  Company Number: FR-NOVOPROD-399440

PATIENT
  Age: 67 Year
  Sex: Female

DRUGS (7)
  1. VICTOZA [Suspect]
     Indication: TYPE 2 DIABETES MELLITUS
     Dosage: 1.2 MG, QD
     Route: 058
     Dates: start: 201201, end: 20131112
  2. STAGID [Concomitant]
     Indication: DIABETES MELLITUS
     Dosage: 3 TAB, QD (700 MG TID)
     Route: 048
  3. STAGID [Concomitant]
     Dosage: 3 TAB, QD
     Route: 048
  4. TAHOR [Concomitant]
     Indication: DYSLIPIDAEMIA
     Dosage: 10 MG, QD
     Route: 048
  5. FOZIRETIC [Concomitant]
     Indication: HYPERTENSION
     Dosage: 32.5 MG, QD
     Route: 048
  6. ASPEGIC                            /00002703/ [Concomitant]
     Indication: PROPHYLAXIS
     Dosage: 250 MG, QD
     Route: 048
  7. DIAMICRON [Concomitant]
     Indication: DIABETES MELLITUS
     Dosage: 90 MG, QD
     Route: 048

REACTIONS (4)
  - Lipase increased [Recovered/Resolved]
  - Amylase increased [Recovered/Resolved]
  - Pancreatitis acute [Recovered/Resolved]
  - Diabetes mellitus inadequate control [Unknown]
